FAERS Safety Report 7749983-2 (Version None)
Quarter: 2011Q3

REPORT INFORMATION
  Report Type: 
  Country: None (occurrence: None)
  Receive Date: 20110914
  Receipt Date: 20110908
  Transmission Date: 20111222
  Serious: Yes (Other)
  Sender: FDA-Public Use
  Company Number: GB-PFIZER INC-2010142472

PATIENT
  Sex: Female
  Weight: 3.44 kg

DRUGS (4)
  1. FOLIC ACID [Concomitant]
     Indication: PREGNANCY
     Dosage: 400 MG, DAILY
     Route: 064
     Dates: start: 20100827
  2. FERROUS SULFATE TAB [Concomitant]
     Indication: IRON DEFICIENCY
     Dosage: UNK
     Route: 064
  3. LYRICA [Suspect]
     Indication: ARNOLD-CHIARI MALFORMATION
  4. LYRICA [Suspect]
     Indication: PAIN IN EXTREMITY
     Dosage: 100 MG, 3X/DAY
     Route: 064
     Dates: start: 20100303, end: 20101104

REACTIONS (2)
  - CARDIAC MURMUR FUNCTIONAL [None]
  - MATERNAL EXPOSURE DURING PREGNANCY [None]
